FAERS Safety Report 21053274 (Version 1)
Quarter: 2022Q3

REPORT INFORMATION
  Report Type: Spontaneous
  Country: US (occurrence: US)
  Receive Date: 20220707
  Receipt Date: 20220707
  Transmission Date: 20221026
  Serious: No
  Sender: FDA-Public Use
  Company Number: US-GLAXOSMITHKLINE-US2022AMR102032

PATIENT

DRUGS (1)
  1. BENLYSTA [Suspect]
     Active Substance: BELIMUMAB
     Indication: Product used for unknown indication
     Dosage: 1 PUFF(S), WE, BENLYSTA INJECTIONS 1/WEEK FOR 3 WEEKS

REACTIONS (3)
  - Palpitations [Unknown]
  - Arthralgia [Unknown]
  - Pain in jaw [Unknown]
